FAERS Safety Report 16062890 (Version 2)
Quarter: 2019Q1

REPORT INFORMATION
  Report Type: Spontaneous
  Country: AU (occurrence: AU)
  Receive Date: 20190312
  Receipt Date: 20190315
  Transmission Date: 20190418
  Serious: Yes (Other)
  Sender: FDA-Public Use
  Company Number: AU-PFIZER INC-2019106138

PATIENT
  Age: 54 Year
  Sex: Male
  Weight: 112 kg

DRUGS (14)
  1. BUPIVACAINE HCL [Suspect]
     Active Substance: BUPIVACAINE HYDROCHLORIDE
     Indication: PERIOPERATIVE ANALGESIA
     Dosage: 80 MG, TOTAL, (A TOTAL OF 16 ML OF 0.5% BUPIVACAINE (80 MG) (8 ML ON EACH SIDE)
  2. THIOPENTONE SODIUM [Concomitant]
     Active Substance: THIOPENTAL SODIUM
     Indication: CIRCUMCISION
  3. FENTANYL. [Concomitant]
     Active Substance: FENTANYL
     Indication: INDUCTION OF ANAESTHESIA
     Dosage: 100 UG, UNK
  4. FENTANYL. [Concomitant]
     Active Substance: FENTANYL
     Indication: CIRCUMCISION
  5. MIDAZOLAM [Concomitant]
     Active Substance: MIDAZOLAM HYDROCHLORIDE
     Indication: INDUCTION OF ANAESTHESIA
     Dosage: 2 MG, UNK
  6. CEFAZOLIN [Concomitant]
     Active Substance: CEFAZOLIN
     Indication: ANTIBIOTIC THERAPY
     Dosage: 2 G, UNK
     Route: 042
  7. MIDAZOLAM [Concomitant]
     Active Substance: MIDAZOLAM HYDROCHLORIDE
     Indication: CIRCUMCISION
  8. SEVOFLURANE. [Concomitant]
     Active Substance: SEVOFLURANE
     Indication: CIRCUMCISION
     Dosage: UNK
  9. OXYGEN. [Concomitant]
     Active Substance: OXYGEN
     Indication: CIRCUMCISION
  10. BUPIVACAINE HCL [Suspect]
     Active Substance: BUPIVACAINE HYDROCHLORIDE
     Indication: LOCAL ANAESTHESIA
  11. BUPIVACAINE HCL [Suspect]
     Active Substance: BUPIVACAINE HYDROCHLORIDE
     Indication: CIRCUMCISION
  12. SEVOFLURANE. [Concomitant]
     Active Substance: SEVOFLURANE
     Indication: INDUCTION OF ANAESTHESIA
     Dosage: UNK
  13. OXYGEN. [Concomitant]
     Active Substance: OXYGEN
     Indication: INDUCTION OF ANAESTHESIA
     Dosage: UNK
  14. THIOPENTONE SODIUM [Concomitant]
     Active Substance: THIOPENTAL SODIUM
     Indication: INDUCTION OF ANAESTHESIA
     Dosage: 50 MG, UNK

REACTIONS (2)
  - Arrhythmia [Recovered/Resolved]
  - Systemic toxicity [Recovered/Resolved]
